FAERS Safety Report 24173413 (Version 1)
Quarter: 2024Q3

REPORT INFORMATION
  Report Type: Report from Study
  Country: US (occurrence: US)
  Receive Date: 20240805
  Receipt Date: 20240805
  Transmission Date: 20241017
  Serious: No
  Sender: ACADIA PHARMACEUTICALS
  Company Number: US-ACADIA PHARMACEUTICALS INC.-ACA-2024-PIM-003564

PATIENT
  Age: 60 Year
  Sex: Female

DRUGS (37)
  1. NUPLAZID [Suspect]
     Active Substance: PIMAVANSERIN TARTRATE
     Indication: Parkinson^s disease
     Dosage: 34 MILLIGRAM, QD
     Route: 048
     Dates: start: 202101
  2. ESTRACE [Concomitant]
     Active Substance: ESTRADIOL
     Dosage: 1 MILLIGRAM, QD
     Route: 048
  3. DETROL LA [Concomitant]
     Active Substance: TOLTERODINE TARTRATE
     Dosage: 24 HR, 4 MILLIGRAM, QD
     Route: 048
  4. ABRYSVO [Concomitant]
     Active Substance: RECOMBINANT STABILIZED RSV A PREFUSION F ANTIGEN\RECOMBINANT STABILIZED RSV B PREFUSION F ANTIGEN
     Dosage: 120MCG/0.5 ML SOLR INJECTION
     Dates: start: 20231019
  5. SINEMET CR [Concomitant]
     Active Substance: CARBIDOPA\LEVODOPA
     Indication: Parkinsonism
     Dosage: 25-100 MG, 1 TABLET BY MOUTH AT BEDTIME REASONS
  6. SINEMET [Concomitant]
     Active Substance: CARBIDOPA\LEVODOPA
     Indication: Parkinsonism
     Dosage: 25-100NMG, 2 TABS 0600, 2 TABS NOON, 2 TABS 4PM
  7. ZYRTEC [Concomitant]
     Active Substance: CETIRIZINE HYDROCHLORIDE
     Dosage: 10 MILLIGRAM, QD
     Route: 048
  8. CHELATED CALCIUM [Concomitant]
     Dosage: 200 MILLIGRAM, 1,200 MG BY MOUTH ONCE DAILY
     Route: 048
  9. RESTASIS [Concomitant]
     Active Substance: CYCLOSPORINE
     Dosage: 0.05 % OPTHALMIC SUSPENSION, INSTILL 1 DROP INTO BOTH EYES 2 TIMES DAILY
  10. VALIUM [Concomitant]
     Active Substance: DIAZEPAM
     Dosage: 5 MILLIGRAM, QID
     Route: 048
  11. DEPAKOTE [Concomitant]
     Active Substance: DIVALPROEX SODIUM
     Dosage: 250 MILLIGRAM, TID, AT BEDTIME
     Route: 048
  12. COLACE [Concomitant]
     Active Substance: DOCUSATE SODIUM
     Dosage: 100 MILLIGRAM, BID, TAKE 1 CAPSULE
     Route: 048
  13. ARICEPT [Concomitant]
     Active Substance: DONEPEZIL HYDROCHLORIDE
     Dosage: 10 MILLIGRAM, QD, AT BEDTIME
  14. CYMBALTA [Concomitant]
     Active Substance: DULOXETINE HYDROCHLORIDE
     Dosage: 60 MILLIGRAM, QD, IN ADDITION TO 30 MG CAPSULE
     Route: 048
  15. CYMBALTA [Concomitant]
     Active Substance: DULOXETINE HYDROCHLORIDE
     Dosage: 30 MILLIGRAM, IN ADDITION TO 60 MG CAPSULES
     Route: 048
  16. NEURONTIN [Concomitant]
     Active Substance: GABAPENTIN
     Dosage: 100 MILLIGRAM, BID
     Route: 048
  17. GLUCOSAMINE CHONDROITIN [CHONDROITIN SULFATE SODIUM;GLUCOSAMINE SULFAT [Concomitant]
     Dosage: 500-400 MG , 1 TABLET BY MOUTH ONCE DAILY
  18. PROBIOTICS NOS [Concomitant]
     Active Substance: PROBIOTICS NOS
     Dosage: TAKE 1 CAPSULE BY MOUTH 3 TIMES DAILY
  19. MELATONIN [Concomitant]
     Active Substance: MELATONIN
     Dosage: 10 MILLIGRAM, QD
     Route: 048
  20. MOBIC [Concomitant]
     Active Substance: MELOXICAM
     Dosage: 7.5 MG, 1 TABLET BY MOUTH ONCE DAILY
  21. RITALIN [Concomitant]
     Active Substance: METHYLPHENIDATE HYDROCHLORIDE
     Dosage: 5 MILLIGRAM, TAKE 1.5 TABLETS BY MOUTH EVERY MORNING AND LUNCHTIME
  22. COMMIT [Concomitant]
     Active Substance: NICOTINE
     Indication: Nicotine dependence
     Dosage: 2 MILLIGRAM, TAKE 1 EACH BY MOUTH AS NEEDED
  23. NITROSTAT [Concomitant]
     Active Substance: NITROGLYCERIN
     Dosage: 0.4 MG, DISSOLVE 1 TABLET UNDER THE TONGUE EVERY 5 MINUTES AS NEEDED
  24. RIMEGEPANT [Concomitant]
     Active Substance: RIMEGEPANT
     Indication: Migraine
     Dosage: 75 MILLIGRAM, QD
     Route: 048
  25. PRILOSEC [Concomitant]
     Active Substance: OMEPRAZOLE MAGNESIUM
     Dosage: 40 MILLIGRAM, TAKE 1 CAPSULE BY MOUTH 30 TO 60 MINUTES PRIOR TO SUPPER WITH SIPS OF WATER
     Route: 048
  26. ZOFRAN [Concomitant]
     Active Substance: ONDANSETRON HYDROCHLORIDE
     Indication: Nausea
     Dosage: 4 MILLIGRAM, TAKE 1 TABLET BY MOUTH EVERY 6 HOURS AS NEEDED, ALLOW TABLET TO DISSOLVE ON THE TONGUE
     Route: 048
  27. ZOFRAN [Concomitant]
     Active Substance: ONDANSETRON HYDROCHLORIDE
     Indication: Vomiting
  28. INVEGA [Concomitant]
     Active Substance: PALIPERIDONE
     Dosage: CR 24HR, 9 MILLIGRAM, BID
     Route: 048
  29. MIRALAX [Concomitant]
     Active Substance: POLYETHYLENE GLYCOL 3350
     Dosage: 17 GM/SCOOP POWDER, TAKE 17 G BY MOUTH 2 TIMES DAILY
     Route: 048
  30. MINIPRESS [Concomitant]
     Active Substance: PRAZOSIN HYDROCHLORIDE
     Indication: Nightmare
     Dosage: 5 MILLIGRAM, TAKE 1 CAPSULE BY MOUTH AT BEDTIME WITH 3 TABS OF 1 MG FOR A TOTAL OF 8 MG QHS
     Route: 048
  31. MINIPRESS [Concomitant]
     Active Substance: PRAZOSIN HYDROCHLORIDE
     Dosage: 1 MILLIGRAM, TAKE 3 CAPSULE BY MOUTH AT BEDTIME IN ADDITION TO 5 MG
     Route: 048
  32. PROCTOFOAM HC [Concomitant]
     Active Substance: HYDROCORTISONE ACETATE\PRAMOXINE HYDROCHLORIDE
     Dosage: 1-1% FOAM, INSERT INTO THE RECTUM 3 TIMES DAILY
  33. CRESTOR [Concomitant]
     Active Substance: ROSUVASTATIN CALCIUM
     Dosage: 10 MILLIGRAM, QD
     Route: 048
  34. GAS-X [Concomitant]
     Active Substance: DIMETHICONE
     Indication: Flatulence
     Dosage: 125 MILLIGRAM, QID
     Route: 048
  35. CARAFATE [Concomitant]
     Active Substance: SUCRALFATE
     Dosage: 1 GRAM, QD
     Route: 048
  36. DESYREL [Concomitant]
     Active Substance: TRAZODONE HYDROCHLORIDE
     Dosage: 100 MILLIGRAM, QD, TAKE 2 TABLETS BY MOUTH AT BEDTIME
     Route: 048
  37. ZINC COLD THERAPY [Concomitant]
     Dosage: PO, TAKE BY MOUTH AS NEEDED (WHEN GETTING A COLD)

REACTIONS (1)
  - Condition aggravated [Not Recovered/Not Resolved]

NARRATIVE: CASE EVENT DATE: 20240701
